FAERS Safety Report 9732154 (Version 3)
Quarter: 2014Q1

REPORT INFORMATION
  Report Type: Not Available
  Country: FR (occurrence: FR)
  Receive Date: 20131205
  Receipt Date: 20140319
  Transmission Date: 20141002
  Serious: Yes (Hospitalization)
  Sender: FDA-Public Use
  Company Number: FR-ASTELLAS-2013EU009916

PATIENT
  Age: 60 Year
  Sex: Male

DRUGS (1)
  1. VESICARE [Suspect]
     Indication: DYSURIA
     Dosage: 5 MG, UID/QD
     Route: 048
     Dates: start: 201311, end: 201311

REACTIONS (2)
  - Drug prescribing error [Unknown]
  - Urinary retention [Recovered/Resolved]
